FAERS Safety Report 6613588-7 (Version None)
Quarter: 2010Q1

REPORT INFORMATION
  Report Type: 
  Country: None (occurrence: None)
  Receive Date: 20100304
  Receipt Date: 20100225
  Transmission Date: 20100710
  Serious: Yes (Disabling)
  Sender: FDA-Public Use
  Company Number: DK-ABBOTT-10P-044-0621561-00

PATIENT
  Sex: Female

DRUGS (6)
  1. DEPAKENE [Suspect]
     Indication: PETIT MAL EPILEPSY
     Route: 048
     Dates: start: 20040705
  2. DEPAKENE [Suspect]
     Route: 048
     Dates: start: 20070810
  3. DEPAKENE [Suspect]
     Route: 048
     Dates: start: 20070101, end: 20080514
  4. DEPAKENE [Suspect]
     Route: 048
     Dates: start: 20080514
  5. DEPAKENE [Suspect]
     Route: 048
     Dates: start: 19920101
  6. DEPAKENE [Suspect]
     Route: 048
     Dates: start: 19950101, end: 20040705

REACTIONS (7)
  - DISTURBANCE IN ATTENTION [None]
  - FATIGUE [None]
  - HYPOACUSIS [None]
  - LIBIDO DECREASED [None]
  - MEMORY IMPAIRMENT [None]
  - VISUAL ACUITY REDUCED [None]
  - WEIGHT INCREASED [None]
